FAERS Safety Report 8131956-1 (Version None)
Quarter: 2012Q1

REPORT INFORMATION
  Report Type: 
  Country: None (occurrence: None)
  Receive Date: 20120208
  Receipt Date: 20120125
  Transmission Date: 20120608
  Serious: Yes (Hospitalization, Disabling, Other)
  Sender: FDA-Public Use
  Company Number: 2010MA003361

PATIENT
  Sex: Male
  Weight: 71.6683 kg

DRUGS (31)
  1. ERYTHROMYCIN [Concomitant]
  2. FLUCONAZOLE [Concomitant]
  3. HUMALOG [Concomitant]
  4. RENAL CAPS [Concomitant]
  5. VENTOLIN HFA [Concomitant]
  6. ATACAND [Concomitant]
  7. DOCUSATE SODIUM [Concomitant]
  8. NIFEDIPINE [Concomitant]
  9. ZOCOR [Concomitant]
  10. METOCLOPRAMIDE [Suspect]
     Indication: DIABETIC GASTROPARESIS
     Dosage: 10 MG;QD;PO
     Route: 048
     Dates: start: 20051014, end: 20080912
  11. METOCLOPRAMIDE [Suspect]
     Indication: VOMITING
     Dosage: 10 MG;QD;PO
     Route: 048
     Dates: start: 20051014, end: 20080912
  12. METOCLOPRAMIDE [Suspect]
     Indication: NAUSEA
     Dosage: 10 MG;QD;PO
     Route: 048
     Dates: start: 20051014, end: 20080912
  13. CATAPRES-TTS-1 [Concomitant]
  14. LORATADINE [Concomitant]
  15. LISINOPRIL [Concomitant]
  16. ONDANSETRON [Concomitant]
  17. TRAZODONE HYDROCHLORIDE [Concomitant]
  18. AMBIEN [Concomitant]
  19. ARANESP [Concomitant]
  20. NEPHROCAPS [Concomitant]
  21. PHOSLO [Concomitant]
  22. GABAPENTIN [Concomitant]
  23. MINOXIDIL [Concomitant]
  24. APAP TAB [Concomitant]
  25. INSULIN [Concomitant]
  26. METOPROLOL TARTRATE [Concomitant]
  27. PROMETHAZINE [Concomitant]
  28. ZEMPLAR [Concomitant]
  29. LANTUS [Concomitant]
  30. OXYCODONE HCL [Concomitant]
  31. PROTONIX [Concomitant]

REACTIONS (21)
  - OESOPHAGITIS [None]
  - PAIN [None]
  - EMOTIONAL DISTRESS [None]
  - DEFORMITY [None]
  - HYPERGLYCAEMIA [None]
  - TYPE 1 DIABETES MELLITUS [None]
  - HYPERLIPIDAEMIA [None]
  - NEPHROTIC SYNDROME [None]
  - HYPERPHOSPHATAEMIA [None]
  - HYPERTENSION [None]
  - ANAEMIA [None]
  - GASTRITIS EROSIVE [None]
  - TARDIVE DYSKINESIA [None]
  - EXTRAPYRAMIDAL DISORDER [None]
  - NERVOUS SYSTEM DISORDER [None]
  - RENAL FAILURE ACUTE [None]
  - DIABETIC KETOACIDOSIS [None]
  - IMPAIRED GASTRIC EMPTYING [None]
  - INJURY [None]
  - QUALITY OF LIFE DECREASED [None]
  - RENAL FAILURE CHRONIC [None]
